FAERS Safety Report 4604851-X (Version None)
Quarter: 2005Q1

REPORT INFORMATION
  Report Type: 
  Country: None (occurrence: None)
  Receive Date: 20050311
  Receipt Date: 20050202
  Transmission Date: 20050727
  Serious: Yes (Hospitalization)
  Sender: FDA-Public Use
  Company Number: SE-SOLVAY-00305000343

PATIENT
  Age: 32609 Day
  Sex: Male
  Weight: 58.4 kg

DRUGS (2)
  1. CREON [Suspect]
     Indication: ILL-DEFINED DISORDER
     Dosage: DAILY DOSE: 5-6 CAPSULES
     Route: 048
     Dates: start: 20050118, end: 20050201
  2. CREON [Suspect]
     Dosage: DAILY DOSE: 5-6 CAPSULES
     Route: 048
     Dates: start: 20050207

REACTIONS (4)
  - ANASTOMOTIC COMPLICATION [None]
  - HELICOBACTER GASTRITIS [None]
  - LOCALISED OEDEMA [None]
  - VOMITING [None]
